FAERS Safety Report 8135321-2 (Version None)
Quarter: 2012Q1

REPORT INFORMATION
  Report Type: 
  Country: None (occurrence: None)
  Receive Date: 20120214
  Receipt Date: 20120209
  Transmission Date: 20120608
  Serious: Yes (Other)
  Sender: FDA-Public Use
  Company Number: US-JNJFOC-20120205794

PATIENT
  Sex: Female

DRUGS (1)
  1. REOPRO [Suspect]
     Indication: PRODUCT USED FOR UNKNOWN INDICATION
     Dosage: 10 MG/5 ML (5 ML X 1 VIALS AM)
     Route: 065
     Dates: start: 20120209, end: 20120209

REACTIONS (1)
  - CATHETER PLACEMENT [None]
